FAERS Safety Report 9502451 (Version 1)
Quarter: 2013Q3

REPORT INFORMATION
  Report Type: Spontaneous
  Country: US (occurrence: US)
  Receive Date: 20130906
  Receipt Date: 20130906
  Transmission Date: 20140515
  Serious: Yes (Hospitalization)
  Sender: FDA-Public Use
  Company Number: US-ASTRAZENECA-2013SE66769

PATIENT
  Age: 39 Year
  Sex: Male
  Weight: 93 kg

DRUGS (4)
  1. SEROQUEL [Suspect]
     Indication: ANXIETY
     Route: 048
     Dates: end: 201202
  2. JANUVIA [Concomitant]
     Indication: DIABETES MELLITUS
     Dates: start: 2012
  3. GLIPIZIDE [Concomitant]
     Indication: DIABETES MELLITUS
     Dates: start: 2013
  4. OTHER MEDICATIONS [Concomitant]

REACTIONS (2)
  - Diabetes mellitus [Not Recovered/Not Resolved]
  - Off label use [Recovered/Resolved]
